FAERS Safety Report 4929585-3 (Version None)
Quarter: 2006Q1

REPORT INFORMATION
  Report Type: 
  Country: None (occurrence: None)
  Receive Date: 20060223
  Receipt Date: 20060201
  Transmission Date: 20060701
  Serious: Yes (Other)
  Sender: FDA-Public Use
  Company Number: US200602000436

PATIENT
  Age: 55 Year
  Sex: Female

DRUGS (8)
  1. HUMULIN N [Suspect]
     Indication: DIABETES MELLITUS
  2. METFORMIN HCL [Concomitant]
  3. NEUROTON (CITICOLINE SODIUM) [Concomitant]
  4. COREG [Concomitant]
  5. ACTOS [Concomitant]
  6. PREVACID [Concomitant]
  7. TRIAMTEX (HYDROCHLOROTHIAZIDE, TRIAMTERENE) [Concomitant]
  8. NOVOLOG MIX 70/30 (INSULIN ASPART, PROTAMINE INSULIN ASPART) [Concomitant]

REACTIONS (2)
  - BLINDNESS UNILATERAL [None]
  - RETINAL HAEMORRHAGE [None]
